FAERS Safety Report 6429526-6 (Version None)
Quarter: 2009Q4

REPORT INFORMATION
  Report Type: 
  Country: None (occurrence: None)
  Receive Date: 20091022
  Receipt Date: 20091016
  Transmission Date: 20100525
  Serious: Yes (Hospitalization)
  Sender: FDA-Public Use
  Company Number: WSDF_00601

PATIENT
  Sex: Male
  Weight: 15.6 kg

DRUGS (1)
  1. WINRHO SDF LIQUID [Suspect]
     Indication: IDIOPATHIC THROMBOCYTOPENIC PURPURA
     Dosage: (57.69 ?G/KG TOTAL INTRAVENOUS))
     Route: 042
     Dates: start: 20070102, end: 20070102

REACTIONS (4)
  - ANAEMIA [None]
  - DISSEMINATED INTRAVASCULAR COAGULATION [None]
  - INTRAVASCULAR HAEMOLYSIS [None]
  - RENAL FAILURE [None]
